FAERS Safety Report 6822319-7 (Version None)
Quarter: 2010Q3

REPORT INFORMATION
  Report Type: 
  Country: None (occurrence: None)
  Receive Date: 20100708
  Receipt Date: 20100629
  Transmission Date: 20110219
  Serious: Yes (Hospitalization)
  Sender: FDA-Public Use
  Company Number: IT-SHIRE-SPV1-2010-00262

PATIENT

DRUGS (1)
  1. FOSRENOL [Suspect]
     Indication: HYPERPHOSPHATAEMIA
     Dosage: 2000 MG / DAY
     Route: 048
     Dates: start: 20090101, end: 20090630

REACTIONS (4)
  - CONSTIPATION [None]
  - PERITONITIS [None]
  - REFUSAL OF TREATMENT BY PATIENT [None]
  - X-RAY ABNORMAL [None]
